FAERS Safety Report 9661928 (Version 2)
Quarter: 2013Q4

REPORT INFORMATION
  Report Type: Spontaneous
  Country: US (occurrence: US)
  Receive Date: 20131031
  Receipt Date: 20131031
  Transmission Date: 20140711
  Serious: No
  Sender: FDA-Public Use
  Company Number: US-PURDUE-USA-2010-0049351

PATIENT
  Sex: 0

DRUGS (2)
  1. OXYCONTIN (NDA 22-272) [Suspect]
     Indication: INJURY
     Dosage: UNK
     Dates: start: 201009
  2. OXYCONTIN (NDA 22-272) [Suspect]
     Indication: PAIN

REACTIONS (2)
  - Medication residue present [Unknown]
  - Pain [Unknown]
